FAERS Safety Report 8335867-8 (Version None)
Quarter: 2012Q2

REPORT INFORMATION
  Report Type: 
  Country: None (occurrence: None)
  Receive Date: 20120504
  Receipt Date: 20120501
  Transmission Date: 20120825
  Serious: No
  Sender: FDA-Public Use
  Company Number: US-PFIZER INC-2012088549

PATIENT
  Sex: Female
  Weight: 85.7 kg

DRUGS (12)
  1. CELEBREX [Suspect]
  2. BACTROBAN [Concomitant]
     Indication: IMPETIGO
     Dosage: 2 %, 3X/DAY (APPLY TO AFFECTED AREA)
  3. CELEBREX [Suspect]
     Indication: OSTEOARTHRITIS
     Dosage: 200 MG (1 TAB), 2X/DAY
     Route: 048
  4. LYRICA [Suspect]
     Dosage: 150 MG (1 TAB), 3X/DAY
     Route: 048
  5. LISINOPRIL [Concomitant]
     Indication: HYPERTENSION
     Dosage: 20 MG, (1 TAB QAM)
     Route: 048
  6. MIRAPEX [Concomitant]
     Indication: RESTLESS LEGS SYNDROME
     Dosage: 0.125 MG, (1 QAM AND QHS)
     Route: 048
  7. AMLODIPINE BESILATE [Concomitant]
     Indication: HYPERTENSION
     Dosage: 5 MG, 1X/DAY
     Route: 048
  8. MIRAPEX [Concomitant]
     Indication: MUSCLE SPASMS
  9. CYMBALTA [Concomitant]
     Indication: TRIGEMINAL NEURALGIA
     Dosage: 60 MG, 1X/DAY
     Route: 048
  10. LORAZEPAM [Concomitant]
     Indication: INSOMNIA
     Dosage: 2 MG, 1 TAB AT BEDTIME IF NEEDED
     Route: 048
  11. ZETIA [Concomitant]
     Indication: HYPERLIPIDAEMIA
     Dosage: 10 MG, DAILY (1 TAB)
     Route: 048
  12. MELATONIN [Concomitant]
     Indication: INSOMNIA
     Dosage: 3 MG, AS NEEDED (AT HS)
     Route: 048

REACTIONS (7)
  - MUSCULOSKELETAL PAIN [None]
  - ARTHRITIS [None]
  - BLOOD CHOLESTEROL INCREASED [None]
  - JOINT SWELLING [None]
  - OEDEMA PERIPHERAL [None]
  - PAIN IN EXTREMITY [None]
  - ARTHRALGIA [None]
